FAERS Safety Report 13374501 (Version 2)
Quarter: 2017Q1

REPORT INFORMATION
  Report Type: Spontaneous
  Country: US (occurrence: US)
  Receive Date: 20170327
  Receipt Date: 20170328
  Transmission Date: 20170429
  Serious: Yes (Other)
  Sender: FDA-Public Use
  Company Number: US-PFIZER INC-2017128783

PATIENT
  Age: 68 Year
  Sex: Female
  Weight: 69.4 kg

DRUGS (2)
  1. XARELTO [Concomitant]
     Active Substance: RIVAROXABAN
     Indication: BLOOD DISORDER
     Dosage: UNK
     Dates: start: 2008
  2. ADRIAMYCIN [Suspect]
     Active Substance: DOXORUBICIN HYDROCHLORIDE
     Indication: HER-2 POSITIVE BREAST CANCER
     Dosage: UNK

REACTIONS (12)
  - Fatigue [Unknown]
  - Thrombosis [Unknown]
  - Stomatitis [Recovered/Resolved]
  - Arthralgia [Unknown]
  - Alopecia [Unknown]
  - Neuropathy peripheral [Unknown]
  - Hypersensitivity [Recovered/Resolved]
  - Gait disturbance [Recovered/Resolved]
  - Deep vein thrombosis [Recovered/Resolved]
  - Anaemia [Recovered/Resolved]
  - Onycholysis [Recovered/Resolved]
  - Weight decreased [Unknown]
